FAERS Safety Report 4835219-9 (Version None)
Quarter: 2005Q4

REPORT INFORMATION
  Report Type: 
  Country: None (occurrence: None)
  Receive Date: 20051114
  Receipt Date: 20051101
  Transmission Date: 20060501
  Serious: Yes (Hospitalization)
  Sender: FDA-Public Use
  Company Number: US_0510123422

PATIENT
  Age: 47 Year
  Sex: Male
  Weight: 90 kg

DRUGS (7)
  1. HUMATROPE [Suspect]
     Indication: GROWTH HORMONE DEFICIENCY
     Dosage: 0.4 MG DAY
     Dates: start: 20050316
  2. ANDROGEL [Concomitant]
  3. LEVOXYL [Concomitant]
  4. HYDROCORTISONE [Concomitant]
  5. PARLODEL [Concomitant]
  6. ZOLOFT (SERTRALINE HYDROCHLORIDE)` [Concomitant]
  7. ASPIRIN [Concomitant]

REACTIONS (8)
  - CAROTID ARTERY OCCLUSION [None]
  - CEREBRAL ISCHAEMIA [None]
  - DISTURBANCE IN ATTENTION [None]
  - DYSARTHRIA [None]
  - EYE PAIN [None]
  - HEADACHE [None]
  - MASS [None]
  - MENINGIOMA [None]
